FAERS Safety Report 18600712 (Version 1)
Quarter: 2020Q4

REPORT INFORMATION
  Report Type: Other
  Country: US (occurrence: US)
  Receive Date: 20201210
  Receipt Date: 20201210
  Transmission Date: 20210114
  Serious: Yes (Other)
  Sender: FDA-Public Use
  Company Number: US-CHEMI SPA-2101831

PATIENT
  Age: 37 Year
  Sex: Male

DRUGS (4)
  1. EVEROLIMUS. [Concomitant]
     Active Substance: EVEROLIMUS
  2. TEMOZOLOMIDE. [Suspect]
     Active Substance: TEMOZOLOMIDE
     Indication: EPENDYMOMA
  3. BEVACIZUMAB. [Concomitant]
     Active Substance: BEVACIZUMAB
  4. CARMUSTINE. [Concomitant]
     Active Substance: CARMUSTINE

REACTIONS (2)
  - Disease progression [Unknown]
  - Drug ineffective [Unknown]
